FAERS Safety Report 21140485 (Version 2)
Quarter: 2022Q3

REPORT INFORMATION
  Report Type: Spontaneous
  Country: CA (occurrence: CA)
  Receive Date: 20220728
  Receipt Date: 20220812
  Transmission Date: 20221027
  Serious: Yes (Other)
  Sender: FDA-Public Use
  Company Number: CA-GLAXOSMITHKLINE-CA2022AMR110537

PATIENT
  Age: 59 Year
  Sex: Female

DRUGS (1)
  1. AMBRISENTAN [Suspect]
     Active Substance: AMBRISENTAN
     Indication: Pulmonary arterial hypertension
     Dosage: 10 MG
     Route: 065
     Dates: start: 20170222

REACTIONS (4)
  - Polyarthritis [Unknown]
  - Spondylitis [Unknown]
  - Toothache [Unknown]
  - Tooth impacted [Unknown]

NARRATIVE: CASE EVENT DATE: 20210101
